FAERS Safety Report 13942351 (Version 1)
Quarter: 2017Q3

REPORT INFORMATION
  Report Type: Spontaneous
  Country: US (occurrence: US)
  Receive Date: 20170906
  Receipt Date: 20170906
  Transmission Date: 20171127
  Serious: Yes (Hospitalization)
  Sender: FDA-Public Use
  Company Number: US-MYLANLABS-2017M1054970

PATIENT
  Age: 19 Year
  Sex: Male

DRUGS (1)
  1. BUPROPION. [Suspect]
     Active Substance: BUPROPION
     Indication: DEPRESSION
     Dosage: 150MG, 28 PILLS (OVERDOSE)
     Route: 065

REACTIONS (5)
  - Clonic convulsion [Unknown]
  - Sinus tachycardia [Unknown]
  - Unresponsive to stimuli [Unknown]
  - Overdose [Unknown]
  - Urinary incontinence [Unknown]
